FAERS Safety Report 24946322 (Version 2)
Quarter: 2025Q2

REPORT INFORMATION
  Report Type: Report from Study
  Country: US (occurrence: US)
  Receive Date: 20250210
  Receipt Date: 20250401
  Transmission Date: 20250717
  Serious: Yes (Other)
  Sender: ABBVIE
  Company Number: US-ABBVIE-6098900

PATIENT
  Age: 75 Year
  Sex: Female
  Weight: 68.038 kg

DRUGS (8)
  1. HUMIRA [Suspect]
     Active Substance: ADALIMUMAB
     Indication: Crohn^s disease
     Dosage: FORM STRENGTH: 40?FORM STRENGTH UNITS: MILLIGRAM
     Route: 058
     Dates: start: 2015
  2. PANTOPRAZOLE [Concomitant]
     Active Substance: PANTOPRAZOLE
     Indication: Gastrooesophageal reflux disease
  3. FISH OIL [Concomitant]
     Active Substance: FISH OIL
     Indication: Supplementation therapy
  4. ATORVASTATIN [Concomitant]
     Active Substance: ATORVASTATIN
     Indication: Blood cholesterol abnormal
  5. METOPROLOL [Concomitant]
     Active Substance: METOPROLOL
     Indication: Thrombosis prophylaxis
  6. CLOPIDOGREL [Concomitant]
     Active Substance: CLOPIDOGREL BISULFATE
     Indication: Thrombosis prophylaxis
  7. ASPIRIN [Concomitant]
     Active Substance: ASPIRIN
     Indication: Thrombosis prophylaxis
  8. CALCIUM [Concomitant]
     Active Substance: CALCIUM
     Indication: Mineral supplementation

REACTIONS (2)
  - Atrial fibrillation [Recovered/Resolved]
  - Nephrolithiasis [Recovered/Resolved]

NARRATIVE: CASE EVENT DATE: 20241007
